FAERS Safety Report 5108817-5 (Version None)
Quarter: 2006Q3

REPORT INFORMATION
  Report Type: 
  Country: None (occurrence: None)
  Receive Date: 20060915
  Receipt Date: 20060915
  Transmission Date: 20061208
  Serious: Yes (Death)
  Sender: FDA-Public Use
  Company Number: None

PATIENT
  Age: 54 Year
  Sex: Male
  Weight: 124.7392 kg

DRUGS (1)
  1. PROTAMINE SULFATE [Suspect]
     Indication: HEPARIN NEUTRALISATION THERAPY
     Dosage: 40 MG X 1 IV PUSH
     Route: 042

REACTIONS (4)
  - BLOOD PRESSURE DECREASED [None]
  - CARBON DIOXIDE DECREASED [None]
  - CARDIAC ARREST [None]
  - OXYGEN SATURATION DECREASED [None]
